FAERS Safety Report 6219199-X (Version None)
Quarter: 2009Q2

REPORT INFORMATION
  Report Type: 
  Country: None (occurrence: None)
  Receive Date: 20090604
  Receipt Date: 20090604
  Transmission Date: 20091009
  Serious: Yes (Other)
  Sender: FDA-Public Use
  Company Number: None

PATIENT
  Age: 48 Year
  Sex: Male
  Weight: 73.4827 kg

DRUGS (1)
  1. HIBICLENS [Suspect]
     Indication: STAPHYLOCOCCAL INFECTION
     Dosage: 1CC, ONCE, 047
     Dates: start: 20090403

REACTIONS (1)
  - INCORRECT ROUTE OF DRUG ADMINISTRATION [None]
